FAERS Safety Report 8881782 (Version 1)
Quarter: 2012Q4

REPORT INFORMATION
  Report Type: 
  Country: US (occurrence: US)
  Receive Date: 20121102
  Receipt Date: 20121102
  Transmission Date: 20130627
  Serious: Yes (Hospitalization, Other)
  Sender: FDA-Public Use
  Company Number: US-ELI_LILLY_AND_COMPANY-US201210007419

PATIENT
  Sex: Male

DRUGS (6)
  1. CYMBALTA [Suspect]
     Indication: DEPRESSION
     Dosage: 60 mg, qd
  2. OMEPRAZOLE [Concomitant]
  3. GABAPENTIN [Concomitant]
  4. NORCO [Concomitant]
  5. AMLODIPINE BESYLATE [Concomitant]
  6. LANTUS [Concomitant]

REACTIONS (7)
  - Oral neoplasm [Unknown]
  - Feeding tube complication [Unknown]
  - Personality change [Unknown]
  - Diarrhoea [Unknown]
  - Stomatitis [Unknown]
  - Drug ineffective [Unknown]
  - Intentional drug misuse [Unknown]
